FAERS Safety Report 5167101-4 (Version None)
Quarter: 2006Q4

REPORT INFORMATION
  Report Type: 
  Country: None (occurrence: None)
  Receive Date: 20061207
  Receipt Date: 20060606
  Transmission Date: 20070319
  Serious: Yes (Disabling)
  Sender: FDA-Public Use
  Company Number: FR-GLAXOSMITHKLINE-B0426503A

PATIENT
  Age: 82 Year
  Sex: Male
  Weight: 68 kg

DRUGS (5)
  1. AVODART [Suspect]
     Indication: PROSTATIC ADENOMA
     Dosage: .5MG PER DAY
     Route: 048
     Dates: start: 20040301, end: 20060301
  2. OMIX [Concomitant]
     Indication: PROSTATIC ADENOMA
     Dosage: 1CAP PER DAY
     Route: 048
     Dates: start: 20020101, end: 20060101
  3. PREVISCAN [Concomitant]
     Dosage: .75TAB PER DAY
     Route: 048
     Dates: start: 20000101
  4. PRETERAX [Concomitant]
     Dosage: 1CAP PER DAY
     Route: 048
     Dates: start: 20010101
  5. FLECAINIDE ACETATE [Concomitant]
     Dosage: 100MG PER DAY
     Route: 048
     Dates: start: 20010101

REACTIONS (9)
  - ACTIVITIES OF DAILY LIVING IMPAIRED [None]
  - ATROPHY [None]
  - DYSURIA [None]
  - GYNAECOMASTIA [None]
  - HYPOTONIA [None]
  - MYALGIA [None]
  - OBESITY [None]
  - PENIS DISORDER [None]
  - URINARY TRACT PAIN [None]
